FAERS Safety Report 8845202 (Version 1)
Quarter: 2012Q4

REPORT INFORMATION
  Report Type: Spontaneous
  Country: US (occurrence: None)
  Receive Date: 20120928
  Receipt Date: 20120928
  Transmission Date: 20130627
  Serious: Yes (Other)
  Sender: FDA-Public Use
  Company Number: RB-34690-2011

PATIENT
  Age: 31 Year
  Sex: Male

DRUGS (1)
  1. SUBOXONE [Suspect]
     Indication: PRODUCT USED FOR UNKNOWN INDICATION
     Dosage: (Dosing details unknown Unknown)

REACTIONS (3)
  - Anxiety [None]
  - Feeling abnormal [None]
  - Muscle twitching [None]
